FAERS Safety Report 6500595-8 (Version None)
Quarter: 2009Q4

REPORT INFORMATION
  Report Type: 
  Country: None (occurrence: None)
  Receive Date: 20091216
  Receipt Date: 20081125
  Transmission Date: 20100525
  Serious: No
  Sender: FDA-Public Use
  Company Number: A0758268A

PATIENT
  Age: 80 Year
  Sex: Male

DRUGS (1)
  1. COMMIT [Suspect]
     Dates: start: 20081124, end: 20081125

REACTIONS (1)
  - HICCUPS [None]
